FAERS Safety Report 7042742-8 (Version None)
Quarter: 2010Q4

REPORT INFORMATION
  Report Type: 
  Country: None (occurrence: None)
  Receive Date: 20101013
  Receipt Date: 20100602
  Transmission Date: 20110411
  Serious: No
  Sender: FDA-Public Use
  Company Number: US-ASTRAZENECA-2010SE25598

PATIENT
  Age: 26 Year
  Sex: Female

DRUGS (4)
  1. SYMBICORT [Suspect]
     Indication: ASTHMA
     Dosage: 164/4.5 UG, ONE PUFF BID
     Route: 055
  2. ALBUTEROL [Concomitant]
  3. ANTI DEPRESSANT MEDICATION [Concomitant]
  4. ANTI ANXIETY MEDICATION [Concomitant]

REACTIONS (3)
  - DRUG DOSE OMISSION [None]
  - DYSPNOEA [None]
  - WHEEZING [None]
